FAERS Safety Report 8054461-X (Version None)
Quarter: 2012Q1

REPORT INFORMATION
  Report Type: 
  Country: None (occurrence: None)
  Receive Date: 20120118
  Receipt Date: 20120113
  Transmission Date: 20120608
  Serious: Yes (Death)
  Sender: FDA-Public Use
  Company Number: JP-ASTRAZENECA-2011SE77694

PATIENT
  Age: 25804 Day
  Sex: Male
  Weight: 44 kg

DRUGS (5)
  1. ZYRTEC [Concomitant]
     Route: 048
     Dates: start: 20111108, end: 20111218
  2. IRESSA [Suspect]
     Indication: LUNG ADENOCARCINOMA
     Route: 048
     Dates: start: 20111107, end: 20111212
  3. AMLODIPINE [Concomitant]
     Route: 048
     Dates: end: 20111218
  4. CARVEDILOL [Concomitant]
     Route: 048
     Dates: end: 20111218
  5. MINOCYCLINE HCL [Concomitant]
     Route: 048
     Dates: start: 20111108, end: 20111218

REACTIONS (2)
  - LYMPHANGIOSIS CARCINOMATOSA [None]
  - INTERSTITIAL LUNG DISEASE [None]
